FAERS Safety Report 14401845 (Version 1)
Quarter: 2018Q1

REPORT INFORMATION
  Report Type: Spontaneous
  Country: JP (occurrence: JP)
  Receive Date: 20180117
  Receipt Date: 20180117
  Transmission Date: 20180509
  Serious: Yes (Hospitalization, Other)
  Sender: FDA-Public Use
  Company Number: JP-PFIZER INC-2018012224

PATIENT
  Age: 49 Year
  Sex: Male

DRUGS (1)
  1. AXITINIB [Suspect]
     Active Substance: AXITINIB
     Dosage: 10 MG, DAILY
     Route: 048

REACTIONS (2)
  - Diabetic nephropathy [Recovering/Resolving]
  - Condition aggravated [Recovering/Resolving]
